FAERS Safety Report 19594669 (Version 2)
Quarter: 2021Q3

REPORT INFORMATION
  Report Type: Spontaneous
  Country: JP (occurrence: JP)
  Receive Date: 20210722
  Receipt Date: 20210827
  Transmission Date: 20211014
  Serious: Yes (Hospitalization, Other)
  Sender: FDA-Public Use
  Company Number: JP-TEVA-2021-JP-1936367

PATIENT
  Age: 79 Year
  Sex: Male
  Weight: 63 kg

DRUGS (13)
  1. CILOSTAZOL. [Concomitant]
     Active Substance: CILOSTAZOL
     Route: 065
  2. BEOVA [Concomitant]
     Route: 065
  3. FUROSEMIDE. [Concomitant]
     Active Substance: FUROSEMIDE
     Route: 065
  4. AZILECT [Suspect]
     Active Substance: RASAGILINE MESYLATE
     Indication: PARKINSON^S DISEASE
     Dosage: 1 MILLIGRAM DAILY;
     Route: 048
     Dates: start: 20210422, end: 20210429
  5. DONEPEZIL HYDROCHLORIDE. [Concomitant]
     Active Substance: DONEPEZIL HYDROCHLORIDE
     Route: 065
  6. AMLODIPINE [Concomitant]
     Active Substance: AMLODIPINE BESYLATE
     Route: 065
  7. DROXIDOPA [Suspect]
     Active Substance: DROXIDOPA
     Indication: PARKINSON^S DISEASE
     Dosage: 100 MILLIGRAM DAILY;
     Route: 048
     Dates: start: 20210423, end: 20210429
  8. AZILVA [Concomitant]
     Active Substance: AZILSARTAN KAMEDOXOMIL
     Route: 065
  9. PANTOSIN [Concomitant]
     Active Substance: PANTETHINE
     Route: 065
  10. VESICARE [Concomitant]
     Active Substance: SOLIFENACIN SUCCINATE
     Route: 065
  11. EC DOPARL [Concomitant]
     Active Substance: BENSERAZIDE HYDROCHLORIDE\LEVODOPA
     Route: 065
  12. MENESIT [Concomitant]
     Active Substance: CARBIDOPA\LEVODOPA
     Route: 065
  13. RABEPRAZOLE NA [Concomitant]
     Active Substance: RABEPRAZOLE SODIUM
     Route: 065

REACTIONS (3)
  - Pneumonia [Unknown]
  - Diplegia [Recovered/Resolved]
  - Parkinson^s disease [Unknown]

NARRATIVE: CASE EVENT DATE: 20210429
